FAERS Safety Report 6305515-7 (Version None)
Quarter: 2009Q3

REPORT INFORMATION
  Report Type: 
  Country: None (occurrence: None)
  Receive Date: 20090807
  Receipt Date: 20090730
  Transmission Date: 20100115
  Serious: Yes (Hospitalization)
  Sender: FDA-Public Use
  Company Number: GXKR2009FI08711

PATIENT
  Age: 85 Year
  Sex: Female

DRUGS (3)
  1. SIMVASTATIN [Suspect]
     Dosage: 20 MG/DAY
  2. REUMACON (DEMETHYLPODOPHYLLOTOXIN BENZYLIDENE GLUCOSID, PODOPHYLLOTOXI [Suspect]
  3. DIURETICS (NO INGREDIENT/SUBSTANCES) [Concomitant]

REACTIONS (6)
  - ALANINE AMINOTRANSFERASE INCREASED [None]
  - BLOOD ALBUMIN DECREASED [None]
  - CARDIAC FAILURE [None]
  - DEHYDRATION [None]
  - DRUG INTERACTION [None]
  - RHABDOMYOLYSIS [None]
